FAERS Safety Report 6357282-9 (Version None)
Quarter: 2009Q3

REPORT INFORMATION
  Report Type: 
  Country: None (occurrence: None)
  Receive Date: 20090916
  Receipt Date: 20090904
  Transmission Date: 20100115
  Serious: Yes (Hospitalization, Other)
  Sender: FDA-Public Use
  Company Number: PHHY2009BR37876

PATIENT
  Sex: Male
  Weight: 80 kg

DRUGS (4)
  1. DIOVAN HCT [Suspect]
     Indication: HEART RATE DECREASED
     Dosage: 1  TABLET (160/12.5 MG) DAILY
     Route: 048
     Dates: start: 20070901
  2. DIOVAN HCT [Suspect]
     Dosage: 1 TABLET (320/12.5 MG) DAILY
  3. AAS [Concomitant]
     Indication: ANTICOAGULANT THERAPY
     Dosage: ONE TABLET DAILY (0.25 MG)
     Route: 048
     Dates: start: 19890101
  4. ZYLORIC [Concomitant]
     Indication: BLOOD URIC ACID INCREASED
     Dosage: ONE TABLET DAILY (100 MG)
     Route: 048
     Dates: start: 20040901

REACTIONS (6)
  - BLOOD PRESSURE INCREASED [None]
  - CHONDROPATHY [None]
  - DRUG INEFFECTIVE [None]
  - HEART RATE DECREASED [None]
  - JOINT EFFUSION [None]
  - OEDEMA PERIPHERAL [None]
